FAERS Safety Report 25462558 (Version 1)
Quarter: 2025Q2

REPORT INFORMATION
  Report Type: Spontaneous
  Country: US (occurrence: None)
  Receive Date: 20250620
  Receipt Date: 20250620
  Transmission Date: 20250717
  Serious: Yes (Hospitalization)
  Sender: INCYTE
  Company Number: US-002147023-NVSC2025US098341

PATIENT
  Age: 40 Year

DRUGS (14)
  1. JAKAFI [Suspect]
     Active Substance: RUXOLITINIB
     Indication: Acute graft versus host disease
     Route: 065
  2. TACROLIMUS [Concomitant]
     Active Substance: TACROLIMUS
     Indication: Acute graft versus host disease
     Route: 065
  3. TACROLIMUS [Concomitant]
     Active Substance: TACROLIMUS
     Indication: Prophylaxis against graft versus host disease
     Route: 065
  4. METHYLPREDNISOLONE [Concomitant]
     Active Substance: METHYLPREDNISOLONE
     Indication: Acute graft versus host disease
     Dosage: 2 MG/KG, QD
     Route: 065
  5. INFLIXIMAB [Concomitant]
     Active Substance: INFLIXIMAB
     Indication: Acute graft versus host disease
     Route: 065
  6. INFLIXIMAB-DYYB [Concomitant]
     Active Substance: INFLIXIMAB-DYYB
     Indication: Acute graft versus host disease
     Route: 065
  7. METHOTREXATE [Concomitant]
     Active Substance: METHOTREXATE
     Indication: Prophylaxis against graft versus host disease
     Route: 065
  8. BORTEZOMIB [Concomitant]
     Active Substance: BORTEZOMIB
     Indication: Prophylaxis against graft versus host disease
     Route: 065
  9. CYCLOPHOSPHAMIDE [Concomitant]
     Active Substance: CYCLOPHOSPHAMIDE
     Indication: B-cell type acute leukaemia
     Route: 065
  10. CYCLOPHOSPHAMIDE [Concomitant]
     Active Substance: CYCLOPHOSPHAMIDE
     Indication: Bone marrow conditioning regimen
  11. VINCRISTINE [Concomitant]
     Active Substance: VINCRISTINE
     Indication: B-cell type acute leukaemia
     Route: 065
  12. DOXORUBICIN [Concomitant]
     Active Substance: DOXORUBICIN
     Indication: B-cell type acute leukaemia
     Route: 065
  13. PREDNISONE [Concomitant]
     Active Substance: PREDNISONE
     Indication: B-cell type acute leukaemia
     Route: 065
  14. DASATINIB [Concomitant]
     Active Substance: DASATINIB
     Indication: B-cell type acute leukaemia
     Route: 065

REACTIONS (1)
  - Cytopenia [Unknown]
